FAERS Safety Report 8585571-6 (Version None)
Quarter: 2012Q3

REPORT INFORMATION
  Report Type: 
  Country: None (occurrence: None)
  Receive Date: 20120810
  Receipt Date: 20120802
  Transmission Date: 20120928
  Serious: Yes (Other)
  Sender: FDA-Public Use
  Company Number: SE-JNJFOC-20120712661

PATIENT
  Age: 36 Year
  Sex: Male

DRUGS (3)
  1. IMOVANE [Concomitant]
     Indication: PRODUCT USED FOR UNKNOWN INDICATION
     Dosage: AS NEEDED AT NIGHT
     Route: 065
  2. ATARAX [Concomitant]
     Indication: PRODUCT USED FOR UNKNOWN INDICATION
     Dosage: WHEN NEEDED
     Route: 065
  3. INVEGA [Suspect]
     Indication: HALLUCINATION, AUDITORY
     Route: 065
     Dates: start: 20110101

REACTIONS (2)
  - INTRAOCULAR PRESSURE INCREASED [None]
  - GAZE PALSY [None]
